FAERS Safety Report 4595153-9 (Version None)
Quarter: 2005Q1

REPORT INFORMATION
  Report Type: 
  Country: None (occurrence: None)
  Receive Date: 20050223
  Receipt Date: 20050210
  Transmission Date: 20050727
  Serious: Yes (Other)
  Sender: FDA-Public Use
  Company Number: 2004103296

PATIENT
  Age: 73 Year
  Sex: Female
  Weight: 54.4316 kg

DRUGS (11)
  1. ZOLOFT [Suspect]
     Indication: ANXIETY
     Dosage: 50 MG (50 MG, 1 IN 1 D), ORAL
     Route: 048
  2. ZOLOFT [Suspect]
     Indication: DEPRESSION
     Dosage: 50 MG (50 MG, 1 IN 1 D), ORAL
     Route: 048
  3. BUPROPION HYDROCHLORIDE [Suspect]
     Indication: ANXIETY
     Dates: end: 20040101
  4. BUPROPION HYDROCHLORIDE [Suspect]
     Indication: DEPRESSION
     Dates: end: 20040101
  5. PAROXETINE HCL [Suspect]
     Indication: ANXIETY
  6. PAROXETINE HCL [Suspect]
     Indication: DEPRESSION
  7. PSYCHOLEPTICS (PSYCHOLEPTICS) [Concomitant]
     Indication: ANXIETY
  8. PSYCHOLEPTICS (PSYCHOLEPTICS) [Concomitant]
     Indication: DEPRESSION
  9. PROVELLA-14 (ESTROGENS CONJUGATED, MEDROXYPROGESTERONE ACETATE0 [Concomitant]
  10. CYCLOSPORINE [Concomitant]
  11. ALL OTHER THERAPEUTIC PRODUCTS (ALL OTHER THERAPEUTIC PRODUCTS) [Concomitant]

REACTIONS (8)
  - ANXIETY [None]
  - CATARACT [None]
  - CONDITION AGGRAVATED [None]
  - DEPRESSION [None]
  - DRUG INEFFECTIVE [None]
  - DRUG INTOLERANCE [None]
  - FORMICATION [None]
  - VISION BLURRED [None]
